FAERS Safety Report 8362503-7 (Version None)
Quarter: 2012Q2

REPORT INFORMATION
  Report Type: 
  Country: None (occurrence: None)
  Receive Date: 20120516
  Receipt Date: 20120508
  Transmission Date: 20120825
  Serious: Yes (Hospitalization)
  Sender: FDA-Public Use
  Company Number: US-CELGENEUS-163-21880-12042380

PATIENT
  Sex: Male
  Weight: 96.3 kg

DRUGS (36)
  1. OXYGEN [Concomitant]
     Dosage: 2 LITERS
     Route: 041
     Dates: start: 20120419
  2. MULTIPLE VITAMIN [Concomitant]
     Dosage: 1 TABLET
     Route: 048
  3. ZOMETA [Concomitant]
     Route: 048
  4. LEVOTHYROXINE SODIUM [Concomitant]
     Dosage: 100 MICROGRAM
     Route: 048
  5. LORAZEPAM [Concomitant]
     Indication: NAUSEA
     Dosage: 0.5-1MG
     Route: 041
     Dates: start: 20120419, end: 20120419
  6. REVLIMID [Suspect]
     Dosage: 15 MILLIGRAM
     Route: 048
     Dates: start: 20120502
  7. SODIUM CHLORIDE [Concomitant]
     Dosage: 1000 MILLILITER
     Route: 041
     Dates: start: 20120419, end: 20120419
  8. PROCHLORPERAZINE [Concomitant]
     Indication: NAUSEA
     Dosage: 10 MILLIGRAM
     Route: 048
     Dates: start: 20120419, end: 20120424
  9. SENNA-MINT WAF [Concomitant]
     Dosage: 8.6 MILLIGRAM
     Route: 048
     Dates: start: 20120419
  10. K-PHOS NEUTRAL [Concomitant]
     Dosage: 500 MILLIGRAM
     Route: 048
     Dates: start: 20120421, end: 20120424
  11. ATORVASTATIN CALCIUM [Concomitant]
     Dosage: 10 MILLIGRAM
     Route: 048
     Dates: start: 20120419
  12. POTASSIUM CHLORIDE [Concomitant]
     Dosage: 40 MILLIEQUIVALENTS
     Route: 048
     Dates: start: 20120419, end: 20120419
  13. IPH2101 [Suspect]
     Indication: MULTIPLE MYELOMA
     Dosage: 1 MILLIGRAM/KILOGRAM
     Route: 041
     Dates: start: 20120419, end: 20120419
  14. CETIRIZINE [Concomitant]
     Dosage: 10 MILLIGRAM
     Route: 048
  15. CALCIUM CITRATE +D [Concomitant]
     Dosage: 2 TABLET
     Route: 048
  16. LOVAZA [Concomitant]
     Dosage: 2 CAPSULE
     Route: 048
  17. ZOLPIDEM [Concomitant]
     Dosage: 5-10MG
     Route: 048
     Dates: start: 20120419
  18. PEPCID [Concomitant]
     Dosage: 20 MILLIGRAM
     Route: 041
  19. POTASSIUM CHLORIDE [Concomitant]
     Dosage: 60 MILLIEQUIVALENTS
     Route: 048
     Dates: start: 20120419, end: 20120419
  20. REVLIMID [Suspect]
     Indication: MULTIPLE MYELOMA
     Dosage: 25 MILLIGRAM
     Route: 048
     Dates: start: 20120419, end: 20120419
  21. ACYCLOVIR [Concomitant]
     Indication: ANTIVIRAL PROPHYLAXIS
     Dosage: 400 MILLIGRAM
     Route: 048
     Dates: start: 20120419
  22. CHOLECALCIFEROL [Concomitant]
     Dosage: 2000 UNITS
     Route: 048
  23. GUAIFENESIN [Concomitant]
     Dosage: 200 MILLIGRAM
     Route: 048
     Dates: start: 20120419
  24. DIPHENHYDRAMINE HCL [Concomitant]
     Dosage: 25 MILLIGRAM
     Route: 041
     Dates: start: 20120419
  25. SIMETHICONE [Concomitant]
     Dosage: 30 MILLILITER
     Route: 048
     Dates: start: 20120419
  26. BENADRYL [Concomitant]
     Dosage: 25 MILLIGRAM
     Route: 041
  27. DESOXIMETASONE [Concomitant]
     Dosage: .25 PERCENT
     Route: 061
  28. SAW PALMETTO [Concomitant]
     Dosage: 1 TABLET
     Route: 048
  29. PROCHLORPERAZINE [Concomitant]
     Indication: VOMITING
  30. DOCUSATE [Concomitant]
     Dosage: 100 MILLIGRAM
     Route: 048
     Dates: start: 20120419
  31. MAGNESIUM SULFATE [Concomitant]
     Dosage: 1G IN DEXTROSE 5%
     Dates: start: 20120419, end: 20120420
  32. POTASSIUM CHLORIDE [Concomitant]
     Dosage: 20 MILLIEQUIVALENTS
     Route: 048
     Dates: start: 20120419, end: 20120419
  33. WARFARIN SODIUM [Concomitant]
     Dosage: 1 MILLIGRAM
     Route: 048
     Dates: start: 20120419
  34. SODIUM CHLORIDE [Concomitant]
     Dosage: 1000 MILLILITER
     Route: 041
     Dates: start: 20120419, end: 20120420
  35. ZITHROMAX [Concomitant]
     Route: 065
     Dates: start: 20120401, end: 20120401
  36. LORAZEPAM [Concomitant]
     Indication: VOMITING
     Dosage: 0.5-1MG
     Route: 048
     Dates: start: 20120419, end: 20120419

REACTIONS (1)
  - INFUSION RELATED REACTION [None]
